FAERS Safety Report 7479769 (Version 5)
Quarter: 2013Q4

REPORT INFORMATION
  Report Type: Spontaneous
  Country: US (occurrence: US)
  Receive Date: 20100716
  Receipt Date: 20131120
  Transmission Date: 20140711
  Serious: Yes (Other)
  Sender: FDA-Public Use
  Company Number: US-BAYER-201027995NA

PATIENT
  Age: 21 Year
  Sex: Female
  Weight: 49.88 kg

DRUGS (5)
  1. YAZ [Suspect]
     Indication: PRODUCT USED FOR UNKNOWN INDICATION
     Dosage: UNK UNK, QD
     Route: 048
     Dates: start: 200710, end: 200912
  2. LEVOTHYROXINE SODIUM [Concomitant]
     Dosage: 25 MCG/24HR, UNK
     Route: 048
  3. SYNTHROID [Concomitant]
     Dosage: UNK
     Dates: start: 2002
  4. CIPROFLOXACIN [Concomitant]
     Dosage: 500 MG, UNK
  5. PROCTOZONE H [Concomitant]
     Dosage: 2.5 %, UNK

REACTIONS (4)
  - Biliary colic [None]
  - Abdominal pain upper [None]
  - Cholecystitis chronic [None]
  - Cholesterosis [None]
